FAERS Safety Report 25714687 (Version 3)
Quarter: 2025Q4

REPORT INFORMATION
  Report Type: Spontaneous
  Country: US (occurrence: None)
  Receive Date: 20250822
  Receipt Date: 20251126
  Transmission Date: 20260118
  Serious: No
  Sender: APOTEX
  Company Number: US-APOTEX-2025AP011980

PATIENT
  Age: 16 Year
  Sex: Male

DRUGS (3)
  1. OLANZAPINE [Suspect]
     Active Substance: OLANZAPINE
     Indication: Psychotic disorder
     Dosage: UNK
     Route: 065
  2. SERTRALINE [Suspect]
     Active Substance: SERTRALINE HYDROCHLORIDE
     Indication: Psychotic disorder
     Dosage: UNK
     Route: 065
  3. SERTRALINE [Suspect]
     Active Substance: SERTRALINE HYDROCHLORIDE
     Dosage: 250 MILLIGRAM
     Route: 065

REACTIONS (1)
  - Therapy cessation [Unknown]
